FAERS Safety Report 5441596-0 (Version None)
Quarter: 2007Q3

REPORT INFORMATION
  Report Type: 
  Country: None (occurrence: None)
  Receive Date: 20070830
  Receipt Date: 20070830
  Transmission Date: 20080115
  Serious: Yes (Hospitalization)
  Sender: FDA-Public Use
  Company Number: None

PATIENT
  Age: 67 Year
  Sex: Male
  Weight: 81.6475 kg

DRUGS (1)
  1. RYTHMOL [Suspect]
     Dosage: 150MG TID

REACTIONS (3)
  - ASTHENIA [None]
  - CARDIOMEGALY [None]
  - DYSPNOEA [None]
